FAERS Safety Report 4932273-0 (Version None)
Quarter: 2006Q1

REPORT INFORMATION
  Report Type: 
  Country: None (occurrence: None)
  Receive Date: 20060228
  Receipt Date: 20060217
  Transmission Date: 20060701
  Serious: Yes (Death, Hospitalization)
  Sender: FDA-Public Use
  Company Number: CHWYE345130JAN06

PATIENT
  Age: 24 Year
  Sex: Male

DRUGS (3)
  1. EFFEXOR [Suspect]
     Dates: end: 20040213
  2. IBUPROFEN [Suspect]
     Dates: end: 20040213
  3. MOCLOBEMIDE (MOCLOBEMIDE) [Suspect]
     Dates: end: 20040213

REACTIONS (12)
  - CARDIAC ARREST [None]
  - DIALYSIS [None]
  - DISSEMINATED INTRAVASCULAR COAGULATION [None]
  - DRUG TOXICITY [None]
  - EPISTAXIS [None]
  - GRAND MAL CONVULSION [None]
  - HYPERKALAEMIA [None]
  - MULTIPLE DRUG OVERDOSE [None]
  - RENAL FAILURE [None]
  - RHABDOMYOLYSIS [None]
  - SEROTONIN SYNDROME [None]
  - TORSADE DE POINTES [None]
